FAERS Safety Report 9578450 (Version 1)
Quarter: 2013Q4

REPORT INFORMATION
  Report Type: Spontaneous
  Country: US (occurrence: US)
  Receive Date: 20131001
  Receipt Date: 20131001
  Transmission Date: 20140711
  Serious: No
  Sender: FDA-Public Use
  Company Number: US-AMGEN-USASP2013013116

PATIENT
  Sex: Female
  Weight: 72.56 kg

DRUGS (8)
  1. ENBREL [Suspect]
     Indication: PSORIATIC ARTHROPATHY
     Dosage: 50 MG, QWK
     Route: 058
  2. ENBREL [Suspect]
     Indication: PSORIASIS
  3. METHOTREXATE [Concomitant]
     Dosage: 25 MG/ML, UNK
  4. FISH OIL [Concomitant]
     Dosage: UNK
  5. LEVOTHYROXIN [Concomitant]
     Dosage: 25 MUG, UNK
  6. FOLIC ACID [Concomitant]
     Dosage: UNK
  7. HYDROXYCHLOROQUINE [Concomitant]
     Dosage: 200 MG, UNK
  8. CYCLOSPORINE [Concomitant]
     Dosage: 100 MG, UNK

REACTIONS (3)
  - Psoriatic arthropathy [Unknown]
  - Spinal column stenosis [Unknown]
  - Psoriasis [Unknown]
